FAERS Safety Report 6193564-1 (Version None)
Quarter: 2009Q2

REPORT INFORMATION
  Report Type: 
  Country: None (occurrence: None)
  Receive Date: 20090518
  Receipt Date: 20090508
  Transmission Date: 20091009
  Serious: Yes (Hospitalization)
  Sender: FDA-Public Use
  Company Number: HU-B.I. PHARMACEUTICALS,INC./RIDGEFIELD-2009-DE-03716GD

PATIENT
  Sex: Male

DRUGS (5)
  1. MELOXICAM [Suspect]
     Indication: INTERVERTEBRAL DISC PROTRUSION
     Dosage: 30MG
     Dates: start: 20060501
  2. DICLOFENAC [Suspect]
     Indication: INTERVERTEBRAL DISC PROTRUSION
     Dosage: 150MG
     Dates: start: 20060501
  3. ACETYLSALICYLIC ACID [Suspect]
     Indication: ANTIPLATELET THERAPY
     Dosage: 100MG
  4. CLOPIDOGREL [Suspect]
     Indication: ANTIPLATELET THERAPY
     Dosage: 75MG
  5. SIROLIMUS [Suspect]
     Indication: CARDIOVASCULAR EVENT PROPHYLAXIS
     Dates: start: 20040201

REACTIONS (3)
  - ACUTE MYOCARDIAL INFARCTION [None]
  - DRUG INTERACTION [None]
  - THROMBOSIS IN DEVICE [None]
